FAERS Safety Report 5416672-9 (Version None)
Quarter: 2007Q3

REPORT INFORMATION
  Report Type: 
  Country: None (occurrence: None)
  Receive Date: 20070816
  Receipt Date: 20070608
  Transmission Date: 20080115
  Serious: Yes (Other)
  Sender: FDA-Public Use
  Company Number: PHFR2007GB01434

PATIENT
  Sex: Female

DRUGS (1)
  1. VOLTAREN [Suspect]
     Indication: ABDOMINAL PAIN UPPER
     Dosage: 50MG / DAY
     Route: 030
     Dates: start: 20051118

REACTIONS (5)
  - DRUG ADMINISTRATION ERROR [None]
  - FEMALE SEXUAL DYSFUNCTION [None]
  - HYPOAESTHESIA [None]
  - INJECTION SITE ANAESTHESIA [None]
  - PAIN IN EXTREMITY [None]
